FAERS Safety Report 16305598 (Version 3)
Quarter: 2021Q1

REPORT INFORMATION
  Report Type: Spontaneous
  Country: US (occurrence: US)
  Receive Date: 20190513
  Receipt Date: 20210202
  Transmission Date: 20210419
  Serious: Yes (Other)
  Sender: FDA-Public Use
  Company Number: US-PFIZER INC-2019194478

PATIENT
  Age: 61 Year
  Sex: Female
  Weight: 102.9 kg

DRUGS (10)
  1. FLEXERIL [CEFIXIME] [Concomitant]
     Active Substance: CEFIXIME
     Indication: PAIN
     Dosage: 10 MG, 2X/DAY
     Route: 048
  2. LYRICA [Suspect]
     Active Substance: PREGABALIN
     Indication: NEUROPATHY PERIPHERAL
  3. XTAMPZA ER [Concomitant]
     Active Substance: OXYCODONE
     Indication: PAIN
     Dosage: 9 MG, 2X/DAY ((EVERY) 12 HOURS)
     Route: 048
  4. LYRICA [Suspect]
     Active Substance: PREGABALIN
     Indication: OSTEOARTHRITIS
  5. PERCOCET [Suspect]
     Active Substance: ACETAMINOPHEN\OXYCODONE HYDROCHLORIDE
     Indication: BACK PAIN
     Dosage: UNK, 2X/DAY
  6. LYRICA [Suspect]
     Active Substance: PREGABALIN
     Indication: LUMBAR RADICULOPATHY
  7. PERCOCET [Suspect]
     Active Substance: ACETAMINOPHEN\OXYCODONE HYDROCHLORIDE
     Dosage: UNK, 4X/DAY
  8. PERCOCET [Suspect]
     Active Substance: ACETAMINOPHEN\OXYCODONE HYDROCHLORIDE
     Dosage: UNK, 3X/DAY (10/325)
     Route: 048
  9. PERCOCET [Suspect]
     Active Substance: ACETAMINOPHEN\OXYCODONE HYDROCHLORIDE
     Dosage: UNK, AS NEEDED (10/325 MG 1 P.O. (ORALLY) EVERY 6 HOURS AS NEEDED)
     Route: 048
  10. LYRICA [Suspect]
     Active Substance: PREGABALIN
     Indication: BACK PAIN
     Dosage: 300 MG, 2X/DAY
     Route: 048

REACTIONS (11)
  - Pain in extremity [Unknown]
  - Restlessness [Unknown]
  - Insomnia [Unknown]
  - Influenza [Unknown]
  - Withdrawal syndrome [Unknown]
  - Feeling of body temperature change [Unknown]
  - Nausea [Unknown]
  - Loss of consciousness [Unknown]
  - Fatigue [Unknown]
  - Illness [Unknown]
  - Hyperhidrosis [Unknown]

NARRATIVE: CASE EVENT DATE: 20190429
